FAERS Safety Report 16624528 (Version 1)
Quarter: 2019Q3

REPORT INFORMATION
  Report Type: Spontaneous
  Country: US (occurrence: US)
  Receive Date: 20190611
  Receipt Date: 20190611
  Transmission Date: 20191004
  Serious: Yes (Hospitalization)
  Sender: FDA-Public Use
  Company Number: None

PATIENT
  Age: 62 Year
  Sex: Female

DRUGS (4)
  1. ENBREL [Suspect]
     Active Substance: ETANERCEPT
     Indication: RHEUMATOID ARTHRITIS
     Route: 058
     Dates: start: 20161115
  2. IBUPROFEN TAB [Concomitant]
  3. METHOTREXATE TAB [Suspect]
     Active Substance: METHOTREXATE
  4. FOLIC ACID TAB [Concomitant]

REACTIONS (1)
  - Upper limb fracture [None]

NARRATIVE: CASE EVENT DATE: 20190503
